FAERS Safety Report 4327768-7 (Version None)
Quarter: 2004Q1

REPORT INFORMATION
  Report Type: 
  Country: None (occurrence: None)
  Receive Date: 20040325
  Receipt Date: 20040311
  Transmission Date: 20041129
  Serious: Yes (Hospitalization)
  Sender: FDA-Public Use
  Company Number: 2004013891

PATIENT
  Age: 4 Year
  Sex: Male
  Weight: 18 kg

DRUGS (9)
  1. ZITHROMAX [Suspect]
     Indication: BRONCHITIS
     Dosage: 180 MG (DAILY), ORAL
     Route: 048
     Dates: start: 20040213, end: 20040214
  2. DEXTROMETHORPHAN HYDROBROMIDE (DEXTROMETHORPHAN HYDROBROMIDE) [Concomitant]
  3. AMBROXOL HYDROCHLORIDE (AMBROXOL HYDROCHLORIDE) [Concomitant]
  4. STREPTOCOCCUS FAECALIS (STREPTOCOCCUS FAECALIS) [Concomitant]
  5. TULOBUTEROL HYDROCHLORIDE (TULOBUTEROL HYDROCHLORIDE) [Concomitant]
  6. ... [Concomitant]
  7. ... [Concomitant]
  8. CLARITHROMYCIN [Concomitant]
  9. ACETAMINOPHEN [Concomitant]

REACTIONS (12)
  - BLISTER [None]
  - GINGIVAL SWELLING [None]
  - HERPETIC GINGIVOSTOMATITIS [None]
  - MARKEDLY REDUCED DIETARY INTAKE [None]
  - OCULOMUCOCUTANEOUS SYNDROME [None]
  - PYREXIA [None]
  - RASH ERYTHEMATOUS [None]
  - RASH PAPULAR [None]
  - SKIN DESQUAMATION [None]
  - STOMATITIS [None]
  - SWELLING FACE [None]
  - VIRAL INFECTION [None]
